FAERS Safety Report 5030084-1 (Version None)
Quarter: 2006Q2

REPORT INFORMATION
  Report Type: 
  Country: None (occurrence: None)
  Receive Date: 20060504
  Receipt Date: 20051210
  Transmission Date: 20061013
  Serious: No
  Sender: FDA-Public Use
  Company Number: 200512954BWH

PATIENT
  Sex: Male

DRUGS (1)
  1. LEVITRA [Suspect]

REACTIONS (1)
  - EJACULATION FAILURE [None]
